FAERS Safety Report 12006045 (Version 1)
Quarter: 2016Q1

REPORT INFORMATION
  Report Type: Spontaneous
  Country: IT (occurrence: IT)
  Receive Date: 20160205
  Receipt Date: 20160205
  Transmission Date: 20160526
  Serious: Yes (Death)
  Sender: FDA-Public Use
  Company Number: IT-ROCHE-1706356

PATIENT
  Age: 21 Year
  Sex: Male

DRUGS (5)
  1. GANCICLOVIR. [Concomitant]
     Active Substance: GANCICLOVIR
     Indication: PROPHYLAXIS
     Route: 065
  2. ALEMTUZUMAB [Suspect]
     Active Substance: ALEMTUZUMAB
     Indication: IMMUNOSUPPRESSANT DRUG THERAPY
     Route: 065
  3. OKT3 [Concomitant]
     Active Substance: MUROMONAB-CD3
     Indication: PROPHYLAXIS AGAINST TRANSPLANT REJECTION
  4. TACROLIMUS. [Suspect]
     Active Substance: TACROLIMUS
     Indication: IMMUNOSUPPRESSANT DRUG THERAPY
     Route: 065
  5. RITUXIMAB [Suspect]
     Active Substance: RITUXIMAB
     Indication: POST TRANSPLANT LYMPHOPROLIFERATIVE DISORDER
     Route: 042

REACTIONS (1)
  - Fungaemia [Fatal]
